FAERS Safety Report 6895014-6 (Version None)
Quarter: 2010Q3

REPORT INFORMATION
  Report Type: 
  Country: None (occurrence: None)
  Receive Date: 20100727
  Receipt Date: 20100715
  Transmission Date: 20110219
  Serious: Yes (Other)
  Sender: FDA-Public Use
  Company Number: 2010MA000904

PATIENT
  Age: 78 Year
  Sex: Female

DRUGS (4)
  1. DIPYRIDAMOLE [Suspect]
     Dosage: 75 MG;QD;PO
     Route: 048
     Dates: start: 20100701, end: 20100707
  2. SIMVASTATIN [Concomitant]
  3. ACETYLSALICYLIC ACID SRT [Concomitant]
  4. PREV MEDS [Concomitant]

REACTIONS (2)
  - DRUG ERUPTION [None]
  - URTICARIA [None]
